FAERS Safety Report 8024308-6 (Version None)
Quarter: 2011Q4

REPORT INFORMATION
  Report Type: 
  Country: None (occurrence: None)
  Receive Date: 20111130
  Receipt Date: 20110916
  Transmission Date: 20120403
  Serious: Yes (Other)
  Sender: FDA-Public Use
  Company Number: 335270

PATIENT
  Age: 51 Year
  Sex: Female

DRUGS (2)
  1. LANTUS [Concomitant]
  2. NOVOLOG [Suspect]
     Indication: TYPE 1 DIABETES MELLITUS
     Dosage: SLIDING SCALE, QD, SUBCUTANEOUS
     Route: 058
     Dates: start: 20000101

REACTIONS (1)
  - HYPOGLYCAEMIC UNCONSCIOUSNESS [None]
